FAERS Safety Report 20688851 (Version 1)
Quarter: 2022Q2

REPORT INFORMATION
  Report Type: Spontaneous
  Country: HR (occurrence: HR)
  Receive Date: 20220408
  Receipt Date: 20220408
  Transmission Date: 20220720
  Serious: Yes (Other)
  Sender: FDA-Public Use
  Company Number: None

PATIENT
  Age: 21 Year
  Sex: Female
  Weight: 75 kg

DRUGS (1)
  1. IBUPROFEN [Suspect]
     Active Substance: IBUPROFEN
     Dosage: UNIT DOSE: 8 GM, FREQUENCY TIME 1 DAY, DURATION 1 DAY, ADDITIONAL INFO:ADR ADEQUATELY LABELLED: VOMI
     Route: 048
     Dates: start: 20211205, end: 20211205

REACTIONS (3)
  - Vomiting [Unknown]
  - Intentional overdose [Unknown]
  - Suicide attempt [Unknown]

NARRATIVE: CASE EVENT DATE: 20211205
